FAERS Safety Report 17215825 (Version 1)
Quarter: 2019Q4

REPORT INFORMATION
  Report Type: Spontaneous
  Country: FR (occurrence: FR)
  Receive Date: 20191230
  Receipt Date: 20191230
  Transmission Date: 20200122
  Serious: Yes (Hospitalization)
  Sender: FDA-Public Use
  Company Number: FR-INDIVIOR US-INDV-123012-2019

PATIENT
  Age: 39 Year
  Sex: Female

DRUGS (3)
  1. IMOVANE [Suspect]
     Active Substance: ZOPICLONE
     Indication: INTENTIONAL PRODUCT MISUSE
     Dosage: 4 TO 6 TABLETS PER DAY IN 2 DOSES
     Route: 065
  2. SUBUTEX [Suspect]
     Active Substance: BUPRENORPHINE HYDROCHLORIDE
     Indication: INTENTIONAL PRODUCT MISUSE
     Dosage: UP TO 4 TO 5 TABLETS PER DAY
     Route: 045
  3. TERCIAN                            /00759301/ [Suspect]
     Active Substance: CYAMEMAZINE
     Indication: INTENTIONAL PRODUCT MISUSE
     Dosage: UP TO 8 TABLETS PER DAY IN 2 DIVIDED DOSES
     Route: 065

REACTIONS (4)
  - Drug dependence [Not Recovered/Not Resolved]
  - Depressed level of consciousness [Recovered/Resolved]
  - Intentional product use issue [Unknown]
  - Obstructive airways disorder [Recovered/Resolved]

NARRATIVE: CASE EVENT DATE: 2019
